FAERS Safety Report 11716949 (Version 3)
Quarter: 2015Q4

REPORT INFORMATION
  Report Type: Spontaneous
  Country: US (occurrence: US)
  Receive Date: 20151104
  Receipt Date: 20151120
  Transmission Date: 20160304
  Serious: No
  Sender: FDA-Public Use
  Company Number: US-ELI_LILLY_AND_COMPANY-US201103004633

PATIENT
  Sex: Female

DRUGS (3)
  1. FORTEO [Suspect]
     Active Substance: TERIPARATIDE
     Indication: OSTEOPOROSIS
     Dosage: UNK, UNKNOWN
     Route: 065
  2. FORTEO [Suspect]
     Active Substance: TERIPARATIDE
     Dosage: UNK UNK, QD
     Route: 065
  3. FORTEO [Suspect]
     Active Substance: TERIPARATIDE
     Dosage: UNK UNK, QD
     Route: 065

REACTIONS (9)
  - Cataract [Unknown]
  - Pigmentation disorder [Unknown]
  - Rash pruritic [Unknown]
  - Rash erythematous [Unknown]
  - Asthenia [Unknown]
  - Laziness [Unknown]
  - Fatigue [Unknown]
  - Initial insomnia [Unknown]
  - Adverse reaction [Unknown]
